FAERS Safety Report 5043615-2 (Version None)
Quarter: 2006Q2

REPORT INFORMATION
  Report Type: 
  Country: None (occurrence: None)
  Receive Date: 20060628
  Receipt Date: 20060614
  Transmission Date: 20061013
  Serious: Yes (Other)
  Sender: FDA-Public Use
  Company Number: HQWYE233115JUN06

PATIENT
  Age: 8 Year
  Sex: Male

DRUGS (10)
  1. RAPAMUNE [Suspect]
     Indication: KIDNEY TRANSPLANT REJECTION
     Dosage: BELIEVED TO BE 2 MG, ONE TIME DAILY
     Dates: start: 20050801, end: 20060612
  2. PROGRAF [Concomitant]
  3. PREDNISONE TAB [Concomitant]
  4. NORVASC [Concomitant]
  5. CIPROFLOXACIN [Concomitant]
  6. PEPCID [Concomitant]
  7. SINGULAIR [Concomitant]
  8. FLOVENT [Concomitant]
  9. ALBUTEROL [Concomitant]
  10. LASIX [Concomitant]

REACTIONS (6)
  - ABDOMINAL PAIN [None]
  - DECREASED APPETITE [None]
  - MALAISE [None]
  - PERICARDIAL EFFUSION [None]
  - RESPIRATORY DISORDER [None]
  - WEIGHT DECREASED [None]
